FAERS Safety Report 16952710 (Version 1)
Quarter: 2019Q4

REPORT INFORMATION
  Report Type: Spontaneous
  Country: US (occurrence: US)
  Receive Date: 20191023
  Receipt Date: 20191023
  Transmission Date: 20200122
  Serious: No
  Sender: FDA-Public Use
  Company Number: US-AKRON, INC.-2075967

PATIENT
  Sex: Female

DRUGS (2)
  1. DORZOLAMIDE HCL TIMOLOL MALEATE OPHTHALMIC SOLUTION [Suspect]
     Active Substance: DORZOLAMIDE HYDROCHLORIDE\TIMOLOL MALEATE
     Route: 047
  2. TRAVATAN [Suspect]
     Active Substance: TRAVOPROST

REACTIONS (2)
  - Ocular hyperaemia [Unknown]
  - Visual impairment [Unknown]
